FAERS Safety Report 23154360 (Version 1)
Quarter: 2023Q4

REPORT INFORMATION
  Report Type: Spontaneous
  Country: US (occurrence: US)
  Receive Date: 20231107
  Receipt Date: 20231107
  Transmission Date: 20240109
  Serious: No
  Sender: FDA-Public Use
  Company Number: US-Vifor (International) Inc.-VIT-2023-08077

PATIENT
  Sex: Female

DRUGS (1)
  1. VELPHORO [Suspect]
     Active Substance: SUCROFERRIC OXYHYDROXIDE
     Indication: Product used for unknown indication
     Dosage: VELPHORO 1 TABLET (500 MG) BID
     Route: 048
     Dates: start: 202308

REACTIONS (3)
  - Blood parathyroid hormone increased [Unknown]
  - Blood calcium decreased [Unknown]
  - Off label use [Unknown]

NARRATIVE: CASE EVENT DATE: 20230101
